FAERS Safety Report 6185281-9 (Version None)
Quarter: 2009Q2

REPORT INFORMATION
  Report Type: 
  Country: None (occurrence: None)
  Receive Date: 20090511
  Receipt Date: 20090508
  Transmission Date: 20091009
  Serious: Yes (Hospitalization)
  Sender: FDA-Public Use
  Company Number: MA-ROXANE LABORATORIES, INC.-2009-DE-02791GD

PATIENT
  Age: 32 Year
  Sex: Female

DRUGS (4)
  1. MORPHINE [Suspect]
     Indication: SPINAL ANAESTHESIA
     Dosage: 100MCG
  2. BUPIVACAINE [Suspect]
     Indication: SPINAL ANAESTHESIA
     Dosage: 10MG
  3. LEVOTHYROX [Concomitant]
     Indication: AUTOIMMUNE THYROIDITIS
  4. BOTOX [Concomitant]
     Indication: CYSTITIS INTERSTITIAL

REACTIONS (9)
  - DRUG TOXICITY [None]
  - HYPERSENSITIVITY [None]
  - HYPOAESTHESIA [None]
  - MYELITIS [None]
  - PARAESTHESIA [None]
  - PARAPLEGIA [None]
  - PRURITUS GENERALISED [None]
  - SWELLING FACE [None]
  - URTICARIA [None]
